FAERS Safety Report 10336675 (Version 2)
Quarter: 2014Q3

REPORT INFORMATION
  Report Type: Spontaneous
  Country: US (occurrence: US)
  Receive Date: 20140723
  Receipt Date: 20140723
  Transmission Date: 20150326
  Serious: No
  Sender: FDA-Public Use
  Company Number: US-UNITED THERAPEUTICS-UTC-047215

PATIENT
  Sex: Female
  Weight: 106.59 kg

DRUGS (4)
  1. FLOLAN [Concomitant]
     Active Substance: EPOPROSTENOL SODIUM
  2. PREDNISONE. [Suspect]
     Active Substance: PREDNISONE
  3. REMODULIN [Suspect]
     Active Substance: TREPROSTINIL
     Dosage: 0.064 UG/KG/MIN
     Route: 041
     Dates: start: 20070329
  4. COUMADIN [Concomitant]
     Active Substance: WARFARIN SODIUM

REACTIONS (2)
  - Intervertebral disc degeneration [Unknown]
  - Back pain [Unknown]
